FAERS Safety Report 9799558 (Version 1)
Quarter: 2014Q1

REPORT INFORMATION
  Report Type: Spontaneous
  Country: US (occurrence: US)
  Receive Date: 20140106
  Receipt Date: 20140106
  Transmission Date: 20141002
  Serious: No
  Sender: FDA-Public Use
  Company Number: US-GILEAD-2010-0030252

PATIENT
  Age: 82 Year
  Sex: Male

DRUGS (16)
  1. LETAIRIS [Suspect]
     Indication: PULMONARY ARTERIAL HYPERTENSION
     Route: 048
     Dates: start: 20100610
  2. CIPROFLOXACIN [Concomitant]
  3. CALCIUM 600 + D [Concomitant]
  4. NIACIN [Concomitant]
  5. VITAMIN B-12 [Concomitant]
  6. SPIRIVA [Concomitant]
  7. ADVAIR [Concomitant]
  8. ZANTAC [Concomitant]
  9. ALBUTEROL [Concomitant]
  10. ALPRAZOLAM [Concomitant]
  11. PREDNISONE [Concomitant]
  12. FUROSEMIDE [Concomitant]
  13. REVATIO [Concomitant]
  14. ASPIR-81 [Concomitant]
  15. PLAVIX [Concomitant]
  16. METOPROLOL ER [Concomitant]

REACTIONS (1)
  - Oedema peripheral [Not Recovered/Not Resolved]
